FAERS Safety Report 22253797 (Version 1)
Quarter: 2023Q2

REPORT INFORMATION
  Report Type: Spontaneous
  Country: US (occurrence: US)
  Receive Date: 20230426
  Receipt Date: 20230426
  Transmission Date: 20230721
  Serious: No
  Sender: FDA-Public Use
  Company Number: US-UNITED THERAPEUTICS-UNT-2023-004484

PATIENT
  Sex: Female
  Weight: 106.58 kg

DRUGS (6)
  1. REMODULIN [Suspect]
     Active Substance: TREPROSTINIL
     Indication: Pulmonary arterial hypertension
     Dosage: 0.01215 ?G/KG, CONTINUING
     Route: 058
  2. REMODULIN [Suspect]
     Active Substance: TREPROSTINIL
     Dosage: 0.0059 ?G/KG (PUMP RATE 17 UL/HR), CONTINUING
     Route: 058
     Dates: start: 202303
  3. REMODULIN [Suspect]
     Active Substance: TREPROSTINIL
     Dosage: UNK, CONTINUING
     Route: 058
     Dates: start: 202212
  4. REMODULIN [Suspect]
     Active Substance: TREPROSTINIL
     Indication: Pulmonary arterial hypertension
     Dosage: 0.01319 ?G/KG, CONTINUING
     Route: 058
  5. REMODULIN [Suspect]
     Active Substance: TREPROSTINIL
     Dosage: 0.01389 ?G/KG, CONTINUING
     Route: 058
  6. REMODULIN [Suspect]
     Active Substance: TREPROSTINIL
     Dosage: UNK, CONTINUING
     Route: 058

REACTIONS (7)
  - Diarrhoea [Recovering/Resolving]
  - Headache [Unknown]
  - Weight decreased [Unknown]
  - Infusion site pain [Unknown]
  - Arthralgia [Recovering/Resolving]
  - Device failure [Recovered/Resolved]
  - Device failure [Recovered/Resolved]
